FAERS Safety Report 9149466 (Version 1)
Quarter: 2013Q1

REPORT INFORMATION
  Report Type: Spontaneous
  Country: US (occurrence: None)
  Receive Date: 20130301
  Receipt Date: 20130301
  Transmission Date: 20140127
  Serious: Yes (Other)
  Sender: FDA-Public Use
  Company Number: None

PATIENT
  Age: 39 Year
  Sex: Male
  Weight: 91.63 kg

DRUGS (1)
  1. ANDRODERM [Suspect]
     Indication: BLOOD TESTOSTERONE DECREASED
     Dosage: 2 MG DAILY TRANSDERMAL
     Route: 062
     Dates: start: 20130215, end: 20130228

REACTIONS (2)
  - Blood pressure increased [None]
  - Blood pressure diastolic increased [None]
